FAERS Safety Report 9173802 (Version 1)
Quarter: 2013Q1

REPORT INFORMATION
  Report Type: Spontaneous
  Country: US (occurrence: None)
  Receive Date: 20130318
  Receipt Date: 20130318
  Transmission Date: 20140127
  Serious: Yes (Disabling)
  Sender: FDA-Public Use
  Company Number: None

PATIENT
  Age: 53 Year
  Sex: Male
  Weight: 68.04 kg

DRUGS (1)
  1. SAPHRIS [Suspect]
     Indication: BIPOLAR DISORDER
     Dosage: EVENING
     Route: 048
     Dates: start: 20120905, end: 20130228

REACTIONS (10)
  - Muscle spasms [None]
  - Muscular weakness [None]
  - Sleep disorder [None]
  - Jaw disorder [None]
  - Dysgeusia [None]
  - Pain in extremity [None]
  - Gait disturbance [None]
  - Movement disorder [None]
  - Myalgia [None]
  - Dysphemia [None]
